FAERS Safety Report 17834447 (Version 1)
Quarter: 2020Q2

REPORT INFORMATION
  Report Type: Report from Study
  Country: AU (occurrence: AU)
  Receive Date: 20200528
  Receipt Date: 20200528
  Transmission Date: 20200714
  Serious: Yes (Other)
  Sender: FDA-Public Use
  Company Number: AU-ASTRAZENECA-2020SE68300

PATIENT
  Age: 25808 Day
  Sex: Female
  Weight: 72 kg

DRUGS (7)
  1. FASLODEX [Suspect]
     Active Substance: FULVESTRANT
     Indication: BREAST CANCER METASTATIC
     Dosage: 500 MG,EVERY 28 DAYS
     Route: 030
     Dates: start: 201605
  2. OSTELIN [Concomitant]
     Indication: OSTEOPOROSIS
  3. STILNOX [Concomitant]
     Active Substance: ZOLPIDEM TARTRATE
     Indication: SLEEP DISORDER
     Dosage: 10.0MG UNKNOWN
     Route: 048
  4. LIPEX [Concomitant]
     Indication: LIPIDS ABNORMAL
     Dosage: 20.0MG UNKNOWN
     Route: 048
  5. CALTRATE [Concomitant]
     Active Substance: CALCIUM CARBONATE
     Indication: OSTEOPOROSIS
  6. THYROXINE [Concomitant]
     Active Substance: LEVOTHYROXINE
     Indication: HYPOTHYROIDISM
     Dosage: 100.0UG UNKNOWN
  7. AVAPRO [Concomitant]
     Active Substance: IRBESARTAN
     Indication: HYPERTENSION
     Route: 048

REACTIONS (6)
  - Swollen tongue [Recovered/Resolved]
  - Chills [Recovered/Resolved]
  - Oral pruritus [Recovered/Resolved]
  - Vision blurred [Recovered/Resolved]
  - Cough [Recovered/Resolved]
  - Feeling abnormal [Recovered/Resolved]

NARRATIVE: CASE EVENT DATE: 20200515
